FAERS Safety Report 15108391 (Version 1)
Quarter: 2018Q3

REPORT INFORMATION
  Report Type: Spontaneous
  Country: CA (occurrence: CA)
  Receive Date: 20180705
  Receipt Date: 20180705
  Transmission Date: 20181010
  Serious: Yes (Other)
  Sender: FDA-Public Use
  Company Number: CA-BIOVITRUM-2018CA0777

PATIENT
  Age: 48 Year
  Sex: Female

DRUGS (11)
  1. HUMIRA [Suspect]
     Active Substance: ADALIMUMAB
     Route: 058
  2. REMICADE [Suspect]
     Active Substance: INFLIXIMAB
     Route: 042
  3. FENTANYL. [Concomitant]
     Active Substance: FENTANYL
     Indication: PAIN
  4. KINERET [Suspect]
     Active Substance: ANAKINRA
  5. METHOTREXATE. [Suspect]
     Active Substance: METHOTREXATE
     Indication: RHEUMATOID ARTHRITIS
     Route: 048
  6. ENBREL [Suspect]
     Active Substance: ETANERCEPT
     Indication: RHEUMATOID ARTHRITIS
     Route: 058
  7. ORENCIA [Suspect]
     Active Substance: ABATACEPT
  8. ACTEMRA [Suspect]
     Active Substance: TOCILIZUMAB
  9. FENTANYL. [Concomitant]
     Active Substance: FENTANYL
     Indication: RHEUMATOID ARTHRITIS
  10. APO?LEFLUNOMIDE [Suspect]
     Active Substance: LEFLUNOMIDE
  11. RITUXAN [Concomitant]
     Active Substance: RITUXIMAB

REACTIONS (8)
  - Liver function test increased [Unknown]
  - Drug ineffective [Unknown]
  - Sensitivity to weather change [Unknown]
  - Dyspnoea [Unknown]
  - Drug effect decreased [Unknown]
  - Infection [Unknown]
  - Osteomyelitis [Unknown]
  - Swelling [Unknown]
